FAERS Safety Report 8158698-0 (Version None)
Quarter: 2012Q1

REPORT INFORMATION
  Report Type: 
  Country: None (occurrence: None)
  Receive Date: 20120223
  Receipt Date: 20120215
  Transmission Date: 20120608
  Serious: Yes (Hospitalization, Other)
  Sender: FDA-Public Use
  Company Number: US-BAYER-201037148NA

PATIENT
  Age: 50 Year
  Sex: Female
  Weight: 77.098 kg

DRUGS (7)
  1. YASMIN [Suspect]
     Indication: ORAL CONTRACEPTION
     Dosage: UNK UNK, UNK
     Route: 048
     Dates: start: 20040101, end: 20060211
  2. CALCIUM [Concomitant]
  3. ORAL CONTRACEPTIVE NOS [Concomitant]
  4. LOVAZA [Concomitant]
  5. VITAMIN TAB [Concomitant]
  6. TEA, GREEN [Concomitant]
  7. CELEBREX [Concomitant]

REACTIONS (4)
  - PULMONARY EMBOLISM [None]
  - DEEP VEIN THROMBOSIS [None]
  - EMOTIONAL DISTRESS [None]
  - PAIN [None]
